FAERS Safety Report 9985000 (Version 1)
Quarter: 2014Q1

REPORT INFORMATION
  Report Type: Report from Study
  Country: US (occurrence: US)
  Receive Date: 20140307
  Receipt Date: 20140307
  Transmission Date: 20141002
  Serious: No
  Sender: FDA-Public Use
  Company Number: US-ABBVIE-13P-163-1185114-00

PATIENT
  Age: 58 Year
  Sex: Female

DRUGS (15)
  1. HUMIRA [Suspect]
     Indication: PSORIATIC ARTHROPATHY
     Route: 058
     Dates: start: 2010
  2. HUMIRA [Suspect]
     Indication: PSORIASIS
     Route: 058
  3. UNKNOWN BIOLOGIC [Suspect]
     Indication: ARTHRITIS
  4. UNKNOWN BIOLOGIC [Suspect]
     Indication: PSORIASIS
  5. ATENOLOL [Concomitant]
     Indication: PRODUCT USED FOR UNKNOWN INDICATION
  6. CALCIUM [Concomitant]
     Indication: PRODUCT USED FOR UNKNOWN INDICATION
  7. CLARITIN [Concomitant]
     Indication: PRODUCT USED FOR UNKNOWN INDICATION
  8. ECOTRIN [Concomitant]
     Indication: PRODUCT USED FOR UNKNOWN INDICATION
  9. FLUOXETINE HCL [Concomitant]
     Indication: PRODUCT USED FOR UNKNOWN INDICATION
  10. LOSARTAN POTASSIUM [Concomitant]
     Indication: PRODUCT USED FOR UNKNOWN INDICATION
  11. MULTIVITAMINS [Concomitant]
     Indication: PRODUCT USED FOR UNKNOWN INDICATION
  12. PREVACID [Concomitant]
     Indication: PRODUCT USED FOR UNKNOWN INDICATION
  13. SYNTHROID [Concomitant]
     Indication: PRODUCT USED FOR UNKNOWN INDICATION
  14. ULTRAM [Concomitant]
     Indication: PRODUCT USED FOR UNKNOWN INDICATION
  15. IBUPROFEN [Concomitant]
     Indication: PRODUCT USED FOR UNKNOWN INDICATION

REACTIONS (4)
  - Joint swelling [Recovering/Resolving]
  - Glucose tolerance impaired [Not Recovered/Not Resolved]
  - Nasopharyngitis [Recovered/Resolved]
  - Drug ineffective [Unknown]
